FAERS Safety Report 6969583-1 (Version None)
Quarter: 2010Q3

REPORT INFORMATION
  Report Type: 
  Country: None (occurrence: None)
  Receive Date: 20100903
  Receipt Date: 20100820
  Transmission Date: 20110219
  Serious: Yes (Other)
  Sender: FDA-Public Use
  Company Number: 2009S1002241

PATIENT
  Age: 75 Year
  Sex: Female

DRUGS (2)
  1. PHOSPHOSODA FLAVOR NOT SPECIFIED [Suspect]
     Indication: COLONOSCOPY
     Dosage: 90 ML; TOTAL; PO
     Route: 048
     Dates: start: 20060102, end: 20060102
  2. PHOSPHOSODA FLAVOR NOT SPECIFIED [Suspect]
     Indication: OESOPHAGOGASTRODUODENOSCOPY
     Dosage: 90 ML; TOTAL; PO
     Route: 048
     Dates: start: 20060102, end: 20060102

REACTIONS (6)
  - ANAEMIA [None]
  - ASTHENIA [None]
  - EARLY SATIETY [None]
  - FATIGUE [None]
  - RENAL FAILURE ACUTE [None]
  - RENAL FAILURE CHRONIC [None]
